FAERS Safety Report 11589944 (Version 1)
Quarter: 2015Q4

REPORT INFORMATION
  Report Type: Spontaneous
  Country: US (occurrence: US)
  Receive Date: 20151002
  Receipt Date: 20151002
  Transmission Date: 20160304
  Serious: No
  Sender: FDA-Public Use
  Company Number: US-PFIZER INC-2015315785

PATIENT
  Age: 57 Year
  Sex: Male

DRUGS (4)
  1. IBUPROFEN. [Suspect]
     Active Substance: IBUPROFEN
     Indication: FIBROMYALGIA
  2. IBUPROFEN. [Suspect]
     Active Substance: IBUPROFEN
     Indication: HEADACHE
  3. NAPROXEN SODIUM. [Suspect]
     Active Substance: NAPROXEN SODIUM
     Indication: PAIN
     Dosage: UNK
  4. IBUPROFEN. [Suspect]
     Active Substance: IBUPROFEN
     Indication: RHEUMATOID ARTHRITIS
     Dosage: 600 MG ONCE EVERY 8 HOURS

REACTIONS (2)
  - Drug effect incomplete [Unknown]
  - Overdose [Unknown]
